FAERS Safety Report 4335780-7 (Version None)
Quarter: 2004Q2

REPORT INFORMATION
  Report Type: 
  Country: None (occurrence: None)
  Receive Date: 20040406
  Receipt Date: 20040324
  Transmission Date: 20050107
  Serious: Yes (Hospitalization)
  Sender: FDA-Public Use
  Company Number: 163-20785-04030583

PATIENT
  Age: 68 Year
  Sex: Female

DRUGS (4)
  1. THALOMID [Suspect]
     Indication: LUNG NEOPLASM MALIGNANT
     Dosage: 100 REDUCET DO 50 MG, QD, ORAL
     Route: 048
     Dates: start: 20031223, end: 20040216
  2. TAXOTERE [Suspect]
     Indication: LUNG NEOPLASM MALIGNANT
     Dosage: 130 MG, EVERY 3 WEEKS, INTRAVENOUS
     Route: 042
     Dates: end: 20040209
  3. COUMDIN (WARFARIN SODIUM) [Concomitant]
  4. COLACE (DOCUSATE SODIUM) [Concomitant]

REACTIONS (20)
  - ACTIVATED PARTIAL THROMBOPLASTIN TIME PROLONGED [None]
  - ALOPECIA [None]
  - ANAEMIA [None]
  - ASTHENIA [None]
  - CONCUSSION [None]
  - CONSTIPATION [None]
  - DIFFICULTY IN WALKING [None]
  - DIZZINESS [None]
  - DYSPNOEA [None]
  - ECCHYMOSIS [None]
  - FALL [None]
  - FATIGUE [None]
  - HAEMATOCRIT DECREASED [None]
  - HAEMOGLOBIN DECREASED [None]
  - METASTASES TO BONE [None]
  - NEUROLOGICAL EXAMINATION ABNORMAL [None]
  - NEUROPATHY [None]
  - PROTHROMBIN TIME PROLONGED [None]
  - SPINAL CORD DISORDER [None]
  - WHITE BLOOD CELL COUNT DECREASED [None]
